FAERS Safety Report 13492064 (Version 2)
Quarter: 2017Q2

REPORT INFORMATION
  Report Type: Spontaneous
  Country: US (occurrence: US)
  Receive Date: 20170427
  Receipt Date: 20170427
  Transmission Date: 20170830
  Serious: Yes (Other)
  Sender: FDA-Public Use
  Company Number: US-APOTEX-2017AP010814

PATIENT
  Age: 39 Year
  Sex: Male

DRUGS (2)
  1. LEVETIRACETAM. [Concomitant]
     Active Substance: LEVETIRACETAM
     Indication: EPILEPSY
     Dosage: UNK
     Route: 065
  2. LAMOTRIGINE. [Suspect]
     Active Substance: LAMOTRIGINE
     Indication: EPILEPSY
     Dosage: 400 MG, PER DAY DOSE BEFORE AND WITH CLINICAL TOXICITY
     Route: 065

REACTIONS (6)
  - Tremor [Unknown]
  - Learning disability [Unknown]
  - Balance disorder [Unknown]
  - Toxicity to various agents [Unknown]
  - Aphasia [Unknown]
  - Diplopia [Unknown]
